FAERS Safety Report 24404147 (Version 2)
Quarter: 2025Q2

REPORT INFORMATION
  Report Type: Spontaneous
  Country: CA (occurrence: CA)
  Receive Date: 20241007
  Receipt Date: 20250506
  Transmission Date: 20250717
  Serious: Yes (Other)
  Sender: AUROBINDO
  Company Number: CA-AUROBINDO-AUR-APL-2024-048946

PATIENT
  Age: 4 Year
  Sex: Female

DRUGS (1)
  1. MILRINONE LACTATE [Suspect]
     Active Substance: MILRINONE LACTATE
     Indication: Cardiac failure
     Route: 065

REACTIONS (3)
  - Cardiac failure chronic [Unknown]
  - Product use issue [Unknown]
  - Drug ineffective [Unknown]
